FAERS Safety Report 9911724 (Version 1)
Quarter: 2014Q1

REPORT INFORMATION
  Report Type: Spontaneous
  Country: US (occurrence: US)
  Receive Date: 20140219
  Receipt Date: 20140219
  Transmission Date: 20141002
  Serious: Yes (Other)
  Sender: FDA-Public Use
  Company Number: CHPA2014US002661

PATIENT
  Sex: Female

DRUGS (3)
  1. EXCEDRIN EXTRA STRENGTH [Suspect]
  2. EXCEDRIN TENSION HEADACHE [Suspect]
  3. ACETYLSALICYLIC ACID [Suspect]

REACTIONS (1)
  - Myocardial infarction [Unknown]
